FAERS Safety Report 7247954-6 (Version None)
Quarter: 2011Q1

REPORT INFORMATION
  Report Type: 
  Country: None (occurrence: None)
  Receive Date: 20110127
  Receipt Date: 20110125
  Transmission Date: 20110831
  Serious: Yes (Death, Hospitalization)
  Sender: FDA-Public Use
  Company Number: JP-ABBOTT-10P-087-0684219-00

PATIENT
  Sex: Male

DRUGS (20)
  1. NORVIR [Suspect]
     Indication: HIV INFECTION
     Route: 048
     Dates: start: 20080213, end: 20091106
  2. DOXORUBICIN HYDROCHLORIDE [Suspect]
     Indication: ANGIOIMMUNOBLASTIC T-CELL LYMPHOMA
     Dates: start: 20091106, end: 20091109
  3. VINCRISTINE SULFATE [Suspect]
     Indication: ANGIOIMMUNOBLASTIC T-CELL LYMPHOMA
     Dates: start: 20091106, end: 20091109
  4. PREDONINE [Suspect]
     Dates: start: 20091117, end: 20091121
  5. EPZICOM [Suspect]
     Indication: HIV INFECTION
     Route: 048
     Dates: start: 20080213, end: 20091206
  6. CYCLOPHOSPHAMIDE [Suspect]
     Indication: ANGIOIMMUNOBLASTIC T-CELL LYMPHOMA
     Dates: start: 20091106, end: 20091109
  7. DOXORUBICIN HYDROCHLORIDE [Suspect]
     Dates: start: 20091117, end: 20091121
  8. CYCLOPHOSPHAMIDE [Suspect]
     Dates: start: 20091117, end: 20091121
  9. VINCRISTINE SULFATE [Suspect]
     Dates: start: 20091117, end: 20091121
  10. ISENTRESS [Concomitant]
     Indication: HIV INFECTION
     Dates: start: 20091107, end: 20091206
  11. VANCOMYCIN HCL [Concomitant]
     Indication: STAPHYLOCOCCAL INFECTION
     Dosage: 1.5 GRAM DAILY, 0.75GRAM 2 IN 1 DAY
     Dates: start: 20091124, end: 20091206
  12. ZOSYN [Concomitant]
     Indication: PSEUDOMONAS INFECTION
     Dates: start: 20091204, end: 20091206
  13. OMEPRAL [Concomitant]
     Indication: GASTRITIS
     Dates: start: 20091114, end: 20091206
  14. REYATAZ [Suspect]
     Indication: HIV INFECTION
     Route: 048
     Dates: start: 20080213, end: 20091106
  15. PREDONINE [Suspect]
     Indication: ANGIOIMMUNOBLASTIC T-CELL LYMPHOMA
     Dates: start: 20091106, end: 20091109
  16. SANMEL SOL [Concomitant]
     Indication: GASTRITIS
     Dates: start: 20091118, end: 20091206
  17. AMBISOME [Concomitant]
     Indication: PNEUMONIA FUNGAL
     Dates: start: 20091120, end: 20091206
  18. BAKTAR [Suspect]
     Indication: ANTIFUNGAL PROPHYLAXIS
     Dates: start: 20091104, end: 20091206
  19. FAMOTIDINE [Concomitant]
     Indication: GASTRITIS
     Dates: start: 20090916, end: 20091103
  20. VALGANCICLOVIR [Suspect]
     Indication: CYTOMEGALOVIRUS INFECTION
     Dates: start: 20091126, end: 20091130

REACTIONS (12)
  - LIVER DISORDER [None]
  - TUMOUR LYSIS SYNDROME [None]
  - ANGIOIMMUNOBLASTIC T-CELL LYMPHOMA [None]
  - STAPHYLOCOCCAL INFECTION [None]
  - GASTRITIS [None]
  - RENAL FAILURE ACUTE [None]
  - PANCYTOPENIA [None]
  - HYPERURICAEMIA [None]
  - VIRAL RASH [None]
  - PSEUDOMONAS INFECTION [None]
  - MULTI-ORGAN FAILURE [None]
  - ABDOMINAL DISCOMFORT [None]
